FAERS Safety Report 18193652 (Version 1)
Quarter: 2020Q3

REPORT INFORMATION
  Report Type: Spontaneous
  Country: GB (occurrence: GB)
  Receive Date: 20200825
  Receipt Date: 20200825
  Transmission Date: 20201103
  Serious: Yes (Hospitalization, Other)
  Sender: FDA-Public Use
  Company Number: GB-MYLANLABS-2020M1073234

PATIENT
  Sex: Male

DRUGS (2)
  1. ASENAPINE. [Suspect]
     Active Substance: ASENAPINE
     Indication: PRODUCT USED FOR UNKNOWN INDICATION
     Dosage: UNK
  2. CLOZARIL [Suspect]
     Active Substance: CLOZAPINE
     Indication: SCHIZOPHRENIA
     Dosage: UNK
     Route: 048
     Dates: start: 20160801, end: 20180312

REACTIONS (4)
  - Pancreatic necrosis [Recovering/Resolving]
  - Hepatitis [Recovering/Resolving]
  - Schizophrenia [Recovering/Resolving]
  - Pancreatitis [Recovering/Resolving]
